FAERS Safety Report 9506131 (Version 1)
Quarter: 2013Q1

REPORT INFORMATION
  Report Type: Spontaneous
  Country: US (occurrence: None)
  Receive Date: 20130301
  Receipt Date: 20130301
  Transmission Date: 20140127
  Serious: Yes (Life-Threatening, Other)
  Sender: FDA-Public Use
  Company Number: RB-38357-2012

PATIENT
  Sex: Female

DRUGS (2)
  1. SUBOXONE [Suspect]
     Indication: DRUG DEPENDENCE
     Route: 064
     Dates: start: 20100901, end: 201012
  2. SUBUTEX [Suspect]
     Indication: DRUG DEPENDENCE
     Dosage: 8 MG BID TRANSPLACENTAL), (8 MG TID TRANSMAMMARY), (EXPOSED TO POWDER RESIDUE FROM EMPTY BOTTLE OF SUBUTEX ORAL), (12 MG, DOSE TAPERED DOWN TO 1 1/2 TABLET DAILY TRANSMAMMARY)
     Route: 064
     Dates: start: 201012, end: 20110512

REACTIONS (5)
  - Drug withdrawal syndrome neonatal [None]
  - Foetal exposure during pregnancy [None]
  - Exposure during breast feeding [None]
  - Vomiting [None]
  - Small for dates baby [None]
